FAERS Safety Report 4332129-0 (Version None)
Quarter: 2004Q1

REPORT INFORMATION
  Report Type: 
  Country: None (occurrence: None)
  Receive Date: 20040330
  Receipt Date: 20040317
  Transmission Date: 20041129
  Serious: Yes (Hospitalization)
  Sender: FDA-Public Use
  Company Number: 04P-062-0254090-00

PATIENT
  Age: 49 Year
  Sex: Female
  Weight: 75 kg

DRUGS (1)
  1. KLACID FORTE (BIAXIN) (CLARITHROMYCIN) [Suspect]
     Indication: SINOBRONCHITIS
     Dosage: PER ORAL
     Route: 048
     Dates: start: 20040216, end: 20040201

REACTIONS (1)
  - GUILLAIN-BARRE SYNDROME [None]
